FAERS Safety Report 12671454 (Version 4)
Quarter: 2019Q1

REPORT INFORMATION
  Report Type: Report from Study
  Country: ZA (occurrence: ZA)
  Receive Date: 20160822
  Receipt Date: 20190221
  Transmission Date: 20190417
  Serious: Yes (Other)
  Sender: FDA-Public Use
  Company Number: PHHY2016ZA113731

PATIENT
  Age: 29 Year
  Sex: Female

DRUGS (1)
  1. GILENYA [Suspect]
     Active Substance: FINGOLIMOD HYDROCHLORIDE
     Indication: MULTIPLE SCLEROSIS
     Dosage: 0.5 MG, UNK
     Route: 048
     Dates: start: 20160812, end: 201809

REACTIONS (14)
  - Burning sensation [Unknown]
  - Hypoaesthesia [Unknown]
  - Limb discomfort [Unknown]
  - Maternal exposure during pregnancy [Unknown]
  - Drug ineffective [Unknown]
  - Fatigue [Unknown]
  - Vision blurred [Recovered/Resolved]
  - Mental fatigue [Unknown]
  - Paraesthesia [Unknown]
  - Angina pectoris [Recovered/Resolved]
  - Band sensation [Unknown]
  - Dizziness [Recovered/Resolved]
  - Feeling abnormal [Unknown]
  - Facial pain [Not Recovered/Not Resolved]

NARRATIVE: CASE EVENT DATE: 20160812
